FAERS Safety Report 12537415 (Version 2)
Quarter: 2016Q3

REPORT INFORMATION
  Report Type: Spontaneous
  Country: AU (occurrence: AU)
  Receive Date: 20160707
  Receipt Date: 20160715
  Transmission Date: 20161109
  Serious: Yes (Hospitalization)
  Sender: FDA-Public Use
  Company Number: AU-INDIVIOR LIMITED-INDV-091828-2016

PATIENT
  Age: 30 Year
  Sex: Male

DRUGS (2)
  1. SUBOXONE [Suspect]
     Active Substance: BUPRENORPHINE HYDROCHLORIDE\NALOXONE HYDROCHLORIDE
     Indication: PRODUCT USED FOR UNKNOWN INDICATION
     Dosage: 20MG/DAILY
     Route: 065
  2. ALCOHOL. [Suspect]
     Active Substance: ALCOHOL
     Indication: PRODUCT USED FOR UNKNOWN INDICATION
     Dosage: UP TO 18 GRAMS
     Route: 048

REACTIONS (6)
  - Dyspnoea [Unknown]
  - Hypersensitivity [Unknown]
  - Vision blurred [Unknown]
  - Alcohol abuse [Recovered/Resolved]
  - Vertigo [Unknown]
  - Chest pain [Unknown]
